FAERS Safety Report 12629147 (Version 1)
Quarter: 2016Q3

REPORT INFORMATION
  Report Type: Spontaneous
  Country: GB (occurrence: GB)
  Receive Date: 20160808
  Receipt Date: 20160808
  Transmission Date: 20161109
  Serious: Yes (Hospitalization)
  Sender: FDA-Public Use
  Company Number: GB-AUROBINDO-AUR-APL-2016-09864

PATIENT
  Age: 63 Year
  Sex: Male
  Weight: 98.87 kg

DRUGS (4)
  1. TOPIRAMATE. [Suspect]
     Active Substance: TOPIRAMATE
     Indication: PRODUCT USED FOR UNKNOWN INDICATION
     Dosage: 25MG TITRATED AS DOCTOR PRESCRIBED TO 100MG
     Route: 048
     Dates: start: 20160307, end: 20160406
  2. ANADIN PARACETAMOL [Concomitant]
     Active Substance: ACETAMINOPHEN
     Indication: PRODUCT USED FOR UNKNOWN INDICATION
     Route: 065
  3. IBUPROFEN. [Concomitant]
     Active Substance: IBUPROFEN
     Indication: PRODUCT USED FOR UNKNOWN INDICATION
     Route: 065
  4. MIRTAZAPINE. [Concomitant]
     Active Substance: MIRTAZAPINE
     Indication: DEPRESSION
     Route: 065
     Dates: start: 2016

REACTIONS (4)
  - Headache [Recovered/Resolved]
  - Hot flush [Recovered/Resolved]
  - Seizure [Recovered/Resolved]
  - Paraesthesia [Recovered/Resolved]
